FAERS Safety Report 16428963 (Version 1)
Quarter: 2019Q2

REPORT INFORMATION
  Report Type: Report from Study
  Country: None (occurrence: CA)
  Receive Date: 20190613
  Receipt Date: 20190613
  Transmission Date: 20190711
  Serious: Yes (Hospitalization, Other)
  Sender: FDA-Public Use
  Company Number: CA-ABBVIE-19K-028-2762069-00

PATIENT
  Age: 35 Year
  Sex: Female
  Weight: 85.4 kg

DRUGS (2)
  1. VENCLEXTA [Suspect]
     Active Substance: VENETOCLAX
     Route: 048
     Dates: start: 20190424, end: 20190501
  2. VENCLEXTA [Suspect]
     Active Substance: VENETOCLAX
     Indication: B-CELL LYMPHOMA
     Route: 048
     Dates: start: 20180119, end: 20190423

REACTIONS (1)
  - Allogenic stem cell transplantation [Recovering/Resolving]

NARRATIVE: CASE EVENT DATE: 20190424
